FAERS Safety Report 4342281-9 (Version None)
Quarter: 2004Q2

REPORT INFORMATION
  Report Type: 
  Country: None (occurrence: None)
  Receive Date: 20040415
  Receipt Date: 20040408
  Transmission Date: 20050107
  Serious: Yes (Death, Life-Threatening, Hospitalization)
  Sender: FDA-Public Use
  Company Number: 04-005

PATIENT
  Age: 55 Year
  Sex: Female
  Weight: 89 kg

DRUGS (5)
  1. PROPOFOL INJECTABLE EMULSION 1% [Suspect]
     Indication: SEDATION
     Dosage: IV
     Route: 042
  2. MORPHINE SULFATE [Concomitant]
  3. LOVENOX [Concomitant]
  4. ACETAMINOPHEN [Concomitant]
  5. CIPROFLOXACIN [Concomitant]

REACTIONS (2)
  - DYSPNOEA [None]
  - STRIDOR [None]
